FAERS Safety Report 11549854 (Version 2)
Quarter: 2016Q1

REPORT INFORMATION
  Report Type: Spontaneous
  Country: US (occurrence: US)
  Receive Date: 20150924
  Receipt Date: 20160120
  Transmission Date: 20160525
  Serious: No
  Sender: FDA-Public Use
  Company Number: US-INCYTE CORPORATION-2015IN002331

PATIENT
  Age: 70 Year
  Sex: Female

DRUGS (19)
  1. JAKAFI [Suspect]
     Active Substance: RUXOLITINIB
     Indication: MYELOFIBROSIS
     Dosage: 5 MG, BID
     Dates: start: 20140303
  2. JAKAFI [Suspect]
     Active Substance: RUXOLITINIB
     Dosage: 2.5 MG (5 MG HALF TABLET), BID
     Route: 048
     Dates: start: 2015
  3. GLUTAMINE [Concomitant]
     Active Substance: GLUTAMINE
  4. QUERCETIN [Concomitant]
     Active Substance: QUERCETIN
  5. POLICOSANOL [Concomitant]
  6. BUFFERIN                           /00009201/ [Concomitant]
     Active Substance: ASPIRIN\DIHYDROXYALUMINUM AMINOACETATE ANHYDROUS\MAGNESIUM CARBONATE
  7. VITAMIN D3 [Concomitant]
     Active Substance: CHOLECALCIFEROL
  8. METOPROLOL. [Concomitant]
     Active Substance: METOPROLOL
  9. UBIQUINOL [Concomitant]
     Active Substance: UBIQUINOL
  10. LYSINE [Concomitant]
     Active Substance: LYSINE
  11. LEVOTHYROXINE. [Concomitant]
     Active Substance: LEVOTHYROXINE
  12. ECOTRIN [Concomitant]
     Active Substance: ASPIRIN
  13. OMEGA 3                            /01334101/ [Concomitant]
     Active Substance: OMEGA-3 FATTY ACIDS
  14. CARNITINE [Concomitant]
     Active Substance: CARNITINE
  15. BROMELAIN [Concomitant]
     Active Substance: BROMELAINS
  16. HYDROXYUREA. [Concomitant]
     Active Substance: HYDROXYUREA
  17. BIOTIN [Concomitant]
     Active Substance: BIOTIN
  18. AMLODIPINE [Concomitant]
     Active Substance: AMLODIPINE BESYLATE
  19. MULTIVITAMIN                       /00097801/ [Concomitant]
     Active Substance: VITAMINS

REACTIONS (5)
  - Alopecia [Unknown]
  - Drug dose omission [Unknown]
  - Haemoglobin decreased [Unknown]
  - Pruritus [Unknown]
  - Wrong technique in product usage process [Unknown]

NARRATIVE: CASE EVENT DATE: 20150521
